FAERS Safety Report 20689047 (Version 2)
Quarter: 2022Q2

REPORT INFORMATION
  Report Type: Spontaneous
  Country: US (occurrence: US)
  Receive Date: 20220408
  Receipt Date: 20220426
  Transmission Date: 20220720
  Serious: Yes (Other)
  Sender: FDA-Public Use
  Company Number: US-BAYER-2022A046120

PATIENT
  Age: 31 Year
  Sex: Male

DRUGS (1)
  1. JIVI [Suspect]
     Active Substance: DAMOCTOCOG ALFA PEGOL
     Dosage: 4400 IU, EVERY 5 DAYS PRN

REACTIONS (1)
  - Giant cell arteritis [None]

NARRATIVE: CASE EVENT DATE: 20220327
